FAERS Safety Report 14612400 (Version 1)
Quarter: 2018Q1

REPORT INFORMATION
  Report Type: Spontaneous
  Country: US (occurrence: US)
  Receive Date: 20180307
  Receipt Date: 20180307
  Transmission Date: 20180509
  Serious: Yes (Other)
  Sender: FDA-Public Use
  Company Number: None

PATIENT
  Age: 14 Year
  Sex: Male
  Weight: 48.53 kg

DRUGS (1)
  1. TAMIFLU 75 MG CAPSULE GENERIC [Suspect]
     Active Substance: OSELTAMIVIR PHOSPHATE
     Indication: INFLUENZA
     Dosage: ONE 75 MG CAP
     Route: 048
     Dates: start: 20180304, end: 20180306

REACTIONS (1)
  - Hallucination [None]

NARRATIVE: CASE EVENT DATE: 20180306
